FAERS Safety Report 15590640 (Version 1)
Quarter: 2018Q4

REPORT INFORMATION
  Report Type: Spontaneous
  Country: US (occurrence: US)
  Receive Date: 20181106
  Receipt Date: 20181106
  Transmission Date: 20190205
  Serious: No
  Sender: FDA-Public Use
  Company Number: US-NEOS THERAPEUTICS, LP-2018NEO00117

PATIENT
  Age: 31 Year
  Sex: Female
  Weight: 66.67 kg

DRUGS (6)
  1. ADZENYS XR-ODT [Suspect]
     Active Substance: AMPHETAMINE
     Indication: DISTURBANCE IN ATTENTION
  2. PROBIOTIC [Concomitant]
     Active Substance: PROBIOTICS NOS
  3. TRINTELLIX [Concomitant]
     Active Substance: VORTIOXETINE HYDROBROMIDE
  4. ADZENYS XR-ODT [Suspect]
     Active Substance: AMPHETAMINE
     Indication: ATTENTION DEFICIT/HYPERACTIVITY DISORDER
     Dosage: 18.8 MG, 1X/DAY
     Route: 048
     Dates: start: 20180912, end: 20181012
  5. VALIUM [Concomitant]
     Active Substance: DIAZEPAM
     Dosage: 5 MG, AS NEEDED
  6. ADZENYS XR-ODT [Suspect]
     Active Substance: AMPHETAMINE
     Indication: DISTURBANCE IN ATTENTION
     Dosage: 18.8 MG, 1X/DAY
     Route: 048
     Dates: start: 20181015

REACTIONS (10)
  - Renal impairment [Unknown]
  - Weight decreased [Unknown]
  - Heart rate increased [Recovering/Resolving]
  - Urinary tract infection [Recovered/Resolved]
  - Disturbance in attention [Recovering/Resolving]
  - Fatigue [Unknown]
  - Increased appetite [Not Recovered/Not Resolved]
  - Drug ineffective [Unknown]
  - Blood creatinine increased [Unknown]
  - Urine ketone body present [Unknown]

NARRATIVE: CASE EVENT DATE: 201809
